FAERS Safety Report 6569230-7 (Version None)
Quarter: 2010Q1

REPORT INFORMATION
  Report Type: 
  Country: None (occurrence: None)
  Receive Date: 20100201
  Receipt Date: 20100201
  Transmission Date: 20100710
  Serious: Yes (Life-Threatening, Other)
  Sender: FDA-Public Use
  Company Number: None

PATIENT
  Age: 29 Year
  Sex: Female
  Weight: 42.6381 kg

DRUGS (1)
  1. METAMUCIL-2 [Suspect]
     Indication: COLITIS ULCERATIVE
     Dosage: 1 TEASPOON ONCE PO, FEW MINUTES
     Route: 048
     Dates: start: 20100127, end: 20100127

REACTIONS (7)
  - ASTHMA [None]
  - COUGH [None]
  - EYELID DISORDER [None]
  - HYPERSENSITIVITY [None]
  - RASH [None]
  - RHINORRHOEA [None]
  - SNEEZING [None]
